FAERS Safety Report 4977010-9 (Version None)
Quarter: 2006Q2

REPORT INFORMATION
  Report Type: 
  Country: None (occurrence: None)
  Receive Date: 20060412
  Receipt Date: 20060404
  Transmission Date: 20061013
  Serious: Yes (Other)
  Sender: FDA-Public Use
  Company Number: 200603628

PATIENT
  Sex: Female

DRUGS (1)
  1. FML [Suspect]
     Indication: EPISCLERITIS

REACTIONS (2)
  - BLINDNESS UNILATERAL [None]
  - OPTIC NEURITIS [None]
